FAERS Safety Report 5104012-4 (Version None)
Quarter: 2006Q3

REPORT INFORMATION
  Report Type: 
  Country: None (occurrence: None)
  Receive Date: 20060908
  Receipt Date: 20060826
  Transmission Date: 20061208
  Serious: Yes (Hospitalization)
  Sender: FDA-Public Use
  Company Number: 2006PV020132

PATIENT
  Age: 76 Year
  Sex: Female

DRUGS (17)
  1. SYMLIN [Suspect]
     Indication: DRUG USE FOR UNKNOWN INDICATION
     Dosage: 60 MCG; BID; SC
     Route: 058
  2. METFORMIN [Concomitant]
  3. ACETAZOLIMIDE [Concomitant]
  4. AMBIEN [Concomitant]
  5. BISACODYL [Concomitant]
  6. CALCIUM CARBONATE [Concomitant]
  7. DOCUSATE [Concomitant]
  8. FERROUS SULFATE TAB [Concomitant]
  9. MULTIVITAMIN [Concomitant]
  10. SENNA [Concomitant]
  11. AMLODIPINE [Concomitant]
  12. SIMVASTATIN [Concomitant]
  13. NEXIUM [Concomitant]
  14. TIMOLOL MALEATE [Concomitant]
  15. BRIMONIDINE TARTRATE [Concomitant]
  16. DIPIVEFRIN HCL [Concomitant]
  17. REGULAR INSULIN [Concomitant]

REACTIONS (1)
  - KNEE ARTHROPLASTY [None]
